FAERS Safety Report 11228606 (Version 2)
Quarter: 2015Q3

REPORT INFORMATION
  Report Type: Spontaneous
  Country: FR (occurrence: FR)
  Receive Date: 20150630
  Receipt Date: 20150922
  Transmission Date: 20151125
  Serious: Yes (Hospitalization, Other)
  Sender: FDA-Public Use
  Company Number: FR-ABBVIE-15K-056-1416623-00

PATIENT
  Age: 40 Year
  Sex: Female

DRUGS (1)
  1. HUMIRA [Suspect]
     Active Substance: ADALIMUMAB
     Indication: ANKYLOSING SPONDYLITIS
     Route: 065
     Dates: end: 201505

REACTIONS (6)
  - Pyramidal tract syndrome [Unknown]
  - Negative thoughts [Unknown]
  - Gait disturbance [Unknown]
  - Demyelination [Unknown]
  - Areflexia [Unknown]
  - Depression [Unknown]

NARRATIVE: CASE EVENT DATE: 2015
